FAERS Safety Report 6480768-3 (Version None)
Quarter: 2009Q4

REPORT INFORMATION
  Report Type: 
  Country: None (occurrence: None)
  Receive Date: 20091208
  Receipt Date: 20091126
  Transmission Date: 20100525
  Serious: Yes (Hospitalization, Other)
  Sender: FDA-Public Use
  Company Number: ES-JNJFOC-20091201529

PATIENT
  Age: 57 Year
  Sex: Male

DRUGS (1)
  1. REMICADE [Suspect]
     Indication: RHEUMATOID ARTHRITIS
     Dosage: DOSE AMOUNT NOT REPORTED
     Route: 042
     Dates: start: 20010330, end: 20010823

REACTIONS (4)
  - BRONCHOPLEURAL FISTULA [None]
  - LOBAR PNEUMONIA [None]
  - LUNG ABSCESS [None]
  - PLEURAL EFFUSION [None]
